FAERS Safety Report 10042850 (Version 2)
Quarter: 2014Q2

REPORT INFORMATION
  Report Type: Spontaneous
  Country: US (occurrence: US)
  Receive Date: 20140327
  Receipt Date: 20140602
  Transmission Date: 20141212
  Serious: No
  Sender: FDA-Public Use
  Company Number: US-009507513-1403USA009491

PATIENT
  Age: 21 Year
  Sex: Female
  Weight: 76.19 kg

DRUGS (2)
  1. NEXPLANON [Suspect]
     Dosage: 68 MG/ ONE ROD EVERY THREE YEARS
     Route: 059
     Dates: start: 20140317, end: 20140317
  2. NEXPLANON [Suspect]
     Dosage: UNK
     Route: 059
     Dates: start: 20140317

REACTIONS (3)
  - Device difficult to use [Recovered/Resolved with Sequelae]
  - Product quality issue [Unknown]
  - No adverse event [Unknown]
